FAERS Safety Report 4616203-7 (Version None)
Quarter: 2005Q1

REPORT INFORMATION
  Report Type: 
  Country: None (occurrence: None)
  Receive Date: 20050321
  Receipt Date: 20050309
  Transmission Date: 20050727
  Serious: Yes (Other)
  Sender: FDA-Public Use
  Company Number: 2005028646

PATIENT
  Age: 58 Year
  Sex: Female
  Weight: 64.8644 kg

DRUGS (8)
  1. CELEBREX [Suspect]
     Indication: OSTEOARTHRITIS
     Dosage: (200 MG: QD OR BID), ORAL/2 - 3 YEARS AGO
     Route: 048
  2. SERTRALINE HCL [Concomitant]
  3. LORAZEPAM [Concomitant]
  4. METOPROLOL TARTRATE [Concomitant]
  5. DIAZEPAM [Concomitant]
  6. OMEPRAZOLE [Concomitant]
  7. PAROXETINE HCL [Concomitant]
  8. ASPIRIN [Concomitant]

REACTIONS (7)
  - ANXIETY [None]
  - DIZZINESS [None]
  - FEELING ABNORMAL [None]
  - HEARING IMPAIRED [None]
  - PANIC REACTION [None]
  - TONGUE DISORDER [None]
  - TRANSIENT ISCHAEMIC ATTACK [None]
